FAERS Safety Report 8548725-0 (Version None)
Quarter: 2012Q3

REPORT INFORMATION
  Report Type: 
  Country: None (occurrence: None)
  Receive Date: 20120717
  Receipt Date: 20120702
  Transmission Date: 20120928
  Serious: Yes (Other)
  Sender: FDA-Public Use
  Company Number: ENT 2012-0086

PATIENT
  Age: 78 Year
  Sex: Female

DRUGS (2)
  1. EC DOPARL [Concomitant]
  2. COMTAN [Suspect]
     Indication: PARKINSON'S DISEASE
     Dosage: 2 DF, DAILY (ADMINISTERED VIA TUBE); STRENGTH 100 MG ORAL
     Route: 048

REACTIONS (4)
  - WRONG TECHNIQUE IN DRUG USAGE PROCESS [None]
  - DISEASE PROGRESSION [None]
  - PARKINSON'S DISEASE [None]
  - DYSPHAGIA [None]
